FAERS Safety Report 23754342 (Version 2)
Quarter: 2024Q2

REPORT INFORMATION
  Report Type: Spontaneous
  Country: CZ (occurrence: CZ)
  Receive Date: 20240418
  Receipt Date: 20240506
  Transmission Date: 20240715
  Serious: Yes (Other)
  Sender: FDA-Public Use
  Company Number: CZ-MLMSERVICE-20240411-PI024019-00101-1

PATIENT
  Age: 6 Decade
  Sex: Female

DRUGS (5)
  1. DEXAMETHASONE [Suspect]
     Active Substance: DEXAMETHASONE
     Indication: Diffuse large B-cell lymphoma recurrent
     Dosage: R-EDHAP REGIMEN
     Route: 065
     Dates: start: 202302, end: 2023
  2. RITUXIMAB [Suspect]
     Active Substance: RITUXIMAB
     Indication: Diffuse large B-cell lymphoma recurrent
     Dosage: R-EDHAP REGIMEN
     Route: 065
     Dates: start: 202302, end: 2023
  3. ETOPOSIDE [Suspect]
     Active Substance: ETOPOSIDE
     Indication: Diffuse large B-cell lymphoma recurrent
     Dosage: R-EDHAP REGIMEN
     Route: 065
     Dates: start: 202302, end: 2023
  4. CISPLATIN [Suspect]
     Active Substance: CISPLATIN
     Indication: Diffuse large B-cell lymphoma recurrent
     Dosage: R-EDHAP REGIMEN
     Route: 065
     Dates: start: 202302, end: 2023
  5. CYTARABINE [Suspect]
     Active Substance: CYTARABINE
     Indication: Diffuse large B-cell lymphoma recurrent
     Dosage: R-EDHAP REGIMEN
     Route: 065
     Dates: start: 202302, end: 2023

REACTIONS (3)
  - Circulatory collapse [Unknown]
  - Gastroenteritis clostridial [Unknown]
  - Therapeutic product effect incomplete [Unknown]

NARRATIVE: CASE EVENT DATE: 20230101
